FAERS Safety Report 4434726-0 (Version None)
Quarter: 2004Q3

REPORT INFORMATION
  Report Type: 
  Country: None (occurrence: None)
  Receive Date: 20040827
  Receipt Date: 20040609
  Transmission Date: 20050211
  Serious: No
  Sender: FDA-Public Use
  Company Number: US-BRISTOL-MYERS SQUIBB COMPANY-12612404

PATIENT
  Age: 77 Year
  Sex: Female

DRUGS (2)
  1. DEFINITY [Suspect]
     Indication: STRESS ECHOCARDIOGRAM
     Route: 042
     Dates: start: 20040609, end: 20040609
  2. DOBUTAMINE [Suspect]
     Dates: start: 20040609, end: 20040609

REACTIONS (1)
  - BACK PAIN [None]
